FAERS Safety Report 8369961-2 (Version None)
Quarter: 2012Q2

REPORT INFORMATION
  Report Type: 
  Country: None (occurrence: None)
  Receive Date: 20120518
  Receipt Date: 20120509
  Transmission Date: 20120825
  Serious: Yes (Other)
  Sender: FDA-Public Use
  Company Number: BR-PFIZER INC-2012107602

PATIENT
  Age: 48 Year
  Sex: Female
  Weight: 93 kg

DRUGS (1)
  1. PANTOPRAZOLE [Suspect]
     Indication: GASTROOESOPHAGEAL REFLUX DISEASE
     Dosage: 1 DF, 1X/DAY
     Route: 048
     Dates: start: 20111201, end: 20111201

REACTIONS (5)
  - SWOLLEN TONGUE [None]
  - LARYNGEAL OEDEMA [None]
  - DYSPHAGIA [None]
  - MASS [None]
  - DYSPNOEA [None]
